FAERS Safety Report 9255621 (Version 2)
Quarter: 2014Q1

REPORT INFORMATION
  Report Type: Spontaneous
  Country: US (occurrence: None)
  Receive Date: 20121212
  Receipt Date: 20130314
  Transmission Date: 20141002
  Serious: No
  Sender: FDA-Public Use
  Company Number: 1208USA010181

PATIENT
  Age: 62 Year
  Sex: Male
  Weight: 113.8 kg

DRUGS (7)
  1. PEG-INTRON [Suspect]
     Route: 058
     Dates: start: 20120531, end: 20120927
  2. VICTRELIS [Suspect]
     Dates: start: 20120627, end: 20120927
  3. DIOVAN (VALSARTAN) [Concomitant]
     Route: 048
     Dates: start: 20120531, end: 20120927
  4. DIOVAN (VALSARTAN) [Concomitant]
  5. HYDROCHLOROT (HYDROCHLOROTHIAZIDE) [Concomitant]
  6. ADVIL (IBUPROFEN) [Concomitant]
  7. BENEFIBER (GUAR GUM) [Concomitant]

REACTIONS (1)
  - Anaemia [None]
